FAERS Safety Report 8578750-5 (Version None)
Quarter: 2012Q3

REPORT INFORMATION
  Report Type: 
  Country: None (occurrence: None)
  Receive Date: 20120726
  Receipt Date: 20120711
  Transmission Date: 20120928
  Serious: Yes (Hospitalization)
  Sender: FDA-Public Use
  Company Number: 120317

PATIENT
  Age: 55 Year
  Sex: Male
  Weight: 97.977 kg

DRUGS (3)
  1. OMEPRAZOLE [Concomitant]
  2. HALFLYTELY [Suspect]
     Indication: BOWEL PREPARATION
     Dosage: ORAL
     Route: 048
     Dates: start: 20120214, end: 20120215
  3. LISINOPRIL [Concomitant]

REACTIONS (6)
  - UMBILICAL HERNIA [None]
  - DIVERTICULUM INTESTINAL [None]
  - ATELECTASIS [None]
  - ABDOMINAL PAIN [None]
  - PULMONARY FIBROSIS [None]
  - MUSCLE DISORDER [None]
